FAERS Safety Report 7569751 (Version 3)
Quarter: 2014Q2

REPORT INFORMATION
  Report Type: Spontaneous
  Country: US (occurrence: US)
  Receive Date: 20100901
  Receipt Date: 20131024
  Transmission Date: 20141212
  Serious: Yes (Hospitalization, Other)
  Sender: FDA-Public Use
  Company Number: US-PFIZER INC-2009158933

PATIENT
  Age: 18 Year
  Sex: Female

DRUGS (11)
  1. DILANTIN [Suspect]
     Dosage: 100 MG, 3X/DAY
     Route: 048
     Dates: start: 20071109, end: 20071223
  2. DILANTIN [Suspect]
     Dosage: 50MG
     Dates: start: 20071224
  3. PREDNISONE [Concomitant]
     Indication: INFLAMMATION
     Dosage: 20 MG, UNK
     Route: 048
  4. WARFARIN SODIUM [Concomitant]
     Dosage: 2.5 MG, UNK
     Route: 048
     Dates: start: 20071128
  5. PLAQUENIL [Concomitant]
     Dosage: 200 MG, 2X/DAY
     Route: 048
  6. LASIX [Concomitant]
     Dosage: 20 MG, 2X/DAY
     Route: 048
     Dates: start: 20071107
  7. LORATAB [Concomitant]
     Dosage: UNK
     Route: 048
     Dates: start: 20071115
  8. LISINOPRIL [Concomitant]
     Indication: BLOOD PRESSURE
     Dosage: 40 MG, 1X/DAY
     Route: 048
  9. LOVENOX [Concomitant]
     Dosage: 60 MG, 1X/DAY
     Route: 058
     Dates: start: 20071128
  10. BENICAR [Concomitant]
     Dosage: 20 MG, 1X/DAY
  11. LIPITOR [Concomitant]
     Dosage: 10 MG, 1X/DAY

REACTIONS (1)
  - Stevens-Johnson syndrome [Recovering/Resolving]
